FAERS Safety Report 5159060-5 (Version None)
Quarter: 2006Q4

REPORT INFORMATION
  Report Type: 
  Country: None (occurrence: None)
  Receive Date: 20061128
  Receipt Date: 20061120
  Transmission Date: 20070319
  Serious: Yes (Death)
  Sender: FDA-Public Use
  Company Number: GB-ROXANE LABORATORIES, INC-2006-DE-06132GD

PATIENT
  Age: 61 Year
  Sex: Female

DRUGS (2)
  1. MORPHINE [Suspect]
     Indication: PAIN
  2. MORPHINE [Suspect]

REACTIONS (8)
  - DEATH [None]
  - DRUG EFFECT DECREASED [None]
  - DRUG INTOLERANCE [None]
  - INTESTINAL OBSTRUCTION [None]
  - NAUSEA [None]
  - PRURITUS [None]
  - PRURITUS GENERALISED [None]
  - VOMITING [None]
